FAERS Safety Report 8489418-8 (Version None)
Quarter: 2012Q2

REPORT INFORMATION
  Report Type: 
  Country: None (occurrence: None)
  Receive Date: 20120628
  Receipt Date: 20120628
  Transmission Date: 20120825
  Serious: Yes (Disabling, Other)
  Sender: FDA-Public Use
  Company Number: None

PATIENT
  Age: 52 Year
  Sex: Female
  Weight: 55.7924 kg

DRUGS (2)
  1. MULTAQ [Suspect]
     Indication: ATRIAL FLUTTER
     Dosage: 400MG BID PO
     Route: 048
     Dates: start: 20110623, end: 20120210
  2. MULTAQ [Suspect]
     Indication: ATRIAL FIBRILLATION
     Dosage: 400MG BID PO
     Route: 048
     Dates: start: 20110623, end: 20120210

REACTIONS (1)
  - PULMONARY FUNCTION TEST DECREASED [None]
